FAERS Safety Report 8916975 (Version 1)
Quarter: 2012Q4

REPORT INFORMATION
  Report Type: 
  Country: US (occurrence: US)
  Receive Date: 20121120
  Receipt Date: 20121120
  Transmission Date: 20130627
  Serious: No
  Sender: FDA-Public Use
  Company Number: US-BAYER-2012-120750

PATIENT
  Age: 87 Year
  Sex: Female
  Weight: 59 kg

DRUGS (2)
  1. ALEVE CAPLET/TABLET,MIDOL EXTENDED RELIEF CAPLET [Suspect]
     Indication: HEADACHE
     Dosage: 3 DF, ONCE
     Route: 048
     Dates: start: 20121107, end: 20121107
  2. CYMBALTA [Concomitant]

REACTIONS (2)
  - Inappropriate schedule of drug administration [None]
  - Drug ineffective [None]
